FAERS Safety Report 20583539 (Version 1)
Quarter: 2022Q1

REPORT INFORMATION
  Report Type: Spontaneous
  Country: GB (occurrence: GB)
  Receive Date: 20220311
  Receipt Date: 20220311
  Transmission Date: 20220424
  Serious: Yes (Hospitalization, Other)
  Sender: FDA-Public Use
  Company Number: GB-MHRA-MED-202203041312162840-TDA7B

PATIENT
  Age: 18 Year
  Sex: Female

DRUGS (5)
  1. RISPERIDONE [Suspect]
     Active Substance: RISPERIDONE
     Indication: Borderline personality disorder
     Dosage: UNK UNK, BID, (1MG MORNING 2MG NIGHT))
     Dates: start: 20220221, end: 20220227
  2. MELATONIN [Concomitant]
     Active Substance: MELATONIN
     Dosage: UNK
  3. PROMETHAZINE [Concomitant]
     Active Substance: PROMETHAZINE HYDROCHLORIDE
     Dosage: UNK
  4. SERTRALINE [Concomitant]
     Active Substance: SERTRALINE HYDROCHLORIDE
     Dosage: UNK
  5. FERROUS SULFATE [Concomitant]
     Active Substance: FERROUS SULFATE
     Dosage: UNK

REACTIONS (2)
  - Foreign body ingestion [Unknown]
  - Galactorrhoea [Recovering/Resolving]
